FAERS Safety Report 5362900-8 (Version None)
Quarter: 2007Q2

REPORT INFORMATION
  Report Type: 
  Country: None (occurrence: None)
  Receive Date: 20070612
  Receipt Date: 20070531
  Transmission Date: 20071010
  Serious: Yes (Hospitalization)
  Sender: FDA-Public Use
  Company Number: B0473924A

PATIENT
  Age: 23 Year
  Sex: Female

DRUGS (6)
  1. LAMOTRIGINE [Suspect]
     Indication: EPILEPSY
     Dosage: 50 MG / TWICE PER DAY / UNKNOWN
  2. VALPROIC ACID [Suspect]
     Indication: EPILEPSY
     Dosage: 500 MG / TWICE PER DAY / UNKNOWN
  3. CARBAMAZEPINE [Concomitant]
  4. PHENOXYMETHYLPENICILLIN [Concomitant]
  5. ORNIDAZOLE [Concomitant]
  6. VALPROIC ACID [Concomitant]

REACTIONS (4)
  - ANTICONVULSANT DRUG LEVEL BELOW THERAPEUTIC [None]
  - RESPIRATORY TRACT INFECTION [None]
  - STEVENS-JOHNSON SYNDROME [None]
  - URINARY TRACT INFECTION [None]
